FAERS Safety Report 25251821 (Version 2)
Quarter: 2025Q2

REPORT INFORMATION
  Report Type: Spontaneous
  Country: US (occurrence: US)
  Receive Date: 20250429
  Receipt Date: 20250530
  Transmission Date: 20250717
  Serious: No
  Sender: PFIZER
  Company Number: US-PFIZER INC-202500089564

PATIENT
  Age: 8 Year
  Sex: Male

DRUGS (1)
  1. NGENLA [Suspect]
     Active Substance: SOMATROGON-GHLA
     Dosage: 13.5 MG, WEEKLY (ONCE A WEEK)

REACTIONS (1)
  - Insomnia [Not Recovered/Not Resolved]
